FAERS Safety Report 4422676-5 (Version None)
Quarter: 2004Q3

REPORT INFORMATION
  Report Type: 
  Country: None (occurrence: None)
  Receive Date: 20040713
  Receipt Date: 20040608
  Transmission Date: 20050211
  Serious: No
  Sender: FDA-Public Use
  Company Number: PHEH2004US06376

PATIENT
  Sex: Female

DRUGS (4)
  1. ELIDEL [Suspect]
     Indication: DERMATITIS ATOPIC
     Dosage: TOPICAL
     Route: 061
     Dates: start: 20040501, end: 20040608
  2. ETHANOL (ETHANOL) [Suspect]
  3. CLARITIN [Concomitant]
  4. ORAL CONTRACEPTIVE [Concomitant]

REACTIONS (3)
  - ALCOHOL INTERACTION [None]
  - APPLICATION SITE ERYTHEMA [None]
  - FLUSHING [None]
